FAERS Safety Report 9228659 (Version 1)
Quarter: 2013Q2

REPORT INFORMATION
  Report Type: Spontaneous
  Country: US (occurrence: US)
  Receive Date: 20130412
  Receipt Date: 20130412
  Transmission Date: 20140414
  Serious: Yes (Disabling)
  Sender: FDA-Public Use
  Company Number: US-PFIZER INC-2013112677

PATIENT
  Age: 41 Year
  Sex: Female
  Weight: 97.51 kg

DRUGS (10)
  1. DETROL LA [Suspect]
     Indication: HYPERTONIC BLADDER
     Dosage: 4 MG, 1X/DAY
     Dates: start: 2002
  2. LYRICA [Suspect]
     Indication: FIBROMYALGIA
     Dosage: 75 MG, 3X/DAY
     Dates: start: 2009
  3. TRAMADOL [Concomitant]
     Indication: BACK PAIN
     Dosage: 50 MG, 1X/DAY
  4. PRISTIQ [Concomitant]
     Indication: DEPRESSION
     Dosage: 100 MG, 1X/DAY
     Dates: start: 2010
  5. NEXIUM [Concomitant]
     Indication: GASTROOESOPHAGEAL REFLUX DISEASE
     Dosage: 40 MG, 1X/DAY
  6. FENOFIBRATE [Concomitant]
     Indication: BLOOD CHOLESTEROL INCREASED
     Dosage: 160 MG, 1X/DAY
  7. SYNTHROID [Concomitant]
     Indication: THYROID DISORDER
     Dosage: 0.112 MG, 1X/DAY
  8. SEROQUEL [Concomitant]
     Indication: INSOMNIA
     Dosage: 25 MG, 1X/DAY
  9. TOPAMAX [Concomitant]
     Indication: MIGRAINE
     Dosage: 50 MG, 1X/DAY
  10. PRAVASTATIN [Concomitant]
     Indication: BLOOD PRESSURE ABNORMAL
     Dosage: 20 MG, 1X/DAY

REACTIONS (4)
  - Fall [Unknown]
  - Back injury [Unknown]
  - Spinal disorder [Unknown]
  - Swelling [Unknown]
